FAERS Safety Report 5417044-3 (Version None)
Quarter: 2007Q3

REPORT INFORMATION
  Report Type: 
  Country: None (occurrence: None)
  Receive Date: 20070718
  Receipt Date: 20060818
  Transmission Date: 20080115
  Serious: Yes (Hospitalization)
  Sender: FDA-Public Use
  Company Number: 2006059014

PATIENT
  Age: 79 Year
  Sex: Male

DRUGS (3)
  1. CELEBREX [Suspect]
     Indication: ARTHRITIS
     Dosage: 2 IN D
  2. BEXTRA [Suspect]
     Indication: ARTHRITIS
     Dosage: 1 IN 1 D
  3. VIOXX [Suspect]
     Indication: ARTHRITIS

REACTIONS (2)
  - MYOCARDIAL INFARCTION [None]
  - RENAL FAILURE [None]
